FAERS Safety Report 5452862-7 (Version None)
Quarter: 2007Q3

REPORT INFORMATION
  Report Type: 
  Country: None (occurrence: None)
  Receive Date: 20070914
  Receipt Date: 20070907
  Transmission Date: 20080115
  Serious: Yes (Hospitalization)
  Sender: FDA-Public Use
  Company Number: US-ELI_LILLY_AND_COMPANY-US200706006038

PATIENT
  Age: 60 Year
  Sex: Male
  Weight: 107.94 kg

DRUGS (12)
  1. BYETTA [Suspect]
     Indication: TYPE 2 DIABETES MELLITUS
     Dosage: 5 UG, 2/D
     Route: 058
     Dates: start: 20060101, end: 20060101
  2. BYETTA [Suspect]
     Dosage: 10 UG, 2/D
     Route: 058
     Dates: start: 20060101
  3. GLUCOPHAGE [Concomitant]
     Indication: DIABETES MELLITUS
     Dosage: 500 MG, 2/D
     Dates: start: 20040101
  4. ACTOS [Concomitant]
     Dosage: 30 MG, DAILY (1/D)
     Dates: start: 20070501
  5. DIOVAN /SCH/ [Concomitant]
     Indication: HYPERTENSION
     Dosage: 160 MG, DAILY (1/D)
     Dates: start: 19970101
  6. LIPITOR [Concomitant]
     Indication: BLOOD CHOLESTEROL
     Dosage: 10 MG, DAILY (1/D)
     Dates: start: 20040101
  7. NEXIUM [Concomitant]
     Indication: GASTROOESOPHAGEAL REFLUX DISEASE
     Dosage: 40 MG, DAILY (1/D)
     Dates: start: 20040101
  8. LEVOXYL [Concomitant]
     Dosage: 100 MG, DAILY (1/D)
  9. TOPROL-XL [Concomitant]
     Indication: HEART RATE ABNORMAL
     Dosage: 50 MG, DAILY (1/D)
     Dates: end: 20070501
  10. TOPROL-XL [Concomitant]
     Dosage: 75 MG, 2/D
     Dates: start: 20070501
  11. TIMOLOL MALEATE [Concomitant]
     Indication: GLAUCOMA
     Dosage: 0.5 %, EACH MORNING
     Route: 047
  12. LUMIGAN [Concomitant]
     Indication: GLAUCOMA
     Dosage: 0.03 %, EACH EVENING
     Route: 047

REACTIONS (1)
  - ANGINA UNSTABLE [None]
